FAERS Safety Report 4352020-3 (Version None)
Quarter: 2004Q2

REPORT INFORMATION
  Report Type: 
  Country: None (occurrence: None)
  Receive Date: 20040503
  Receipt Date: 20040409
  Transmission Date: 20050107
  Serious: Yes (Life-Threatening)
  Sender: FDA-Public Use
  Company Number: JP-MERCK-0404USA02188

PATIENT
  Age: 81 Year
  Sex: Female

DRUGS (12)
  1. FOSAMAX [Suspect]
     Indication: OSTEOPOROSIS
     Route: 048
     Dates: start: 20040113, end: 20040114
  2. ALPRAZOLAM [Concomitant]
     Route: 065
     Dates: start: 20000713
  3. AZULENE SULFONATE SODIUM AND LEVOGLUTAMIDE [Concomitant]
     Route: 065
  4. BEVANTOLOL HYDROCHLORIDE [Concomitant]
     Route: 065
     Dates: start: 20020212
  5. DOXIFLURIDINE [Concomitant]
     Route: 065
  6. MEDROXYPROGESTERONE ACETATE [Concomitant]
     Route: 065
  7. METOCLOPRAMIDE [Concomitant]
     Route: 065
  8. NIFEDIPINE [Concomitant]
     Route: 065
     Dates: start: 19980822
  9. NILVADIPINE [Concomitant]
     Route: 065
     Dates: start: 19980822
  10. PRAVASTATIN SODIUM [Concomitant]
     Route: 065
     Dates: start: 19990417
  11. TOFISOPAM [Concomitant]
     Route: 065
     Dates: start: 20000713
  12. TRIHEXYPHENIDYL HYDROCHLORIDE [Concomitant]
     Route: 065
     Dates: start: 20020815

REACTIONS (2)
  - ASTHENIA [None]
  - DYSSTASIA [None]
